FAERS Safety Report 9686845 (Version 1)
Quarter: 2013Q4

REPORT INFORMATION
  Report Type: Spontaneous
  Country: US (occurrence: US)
  Receive Date: 20131113
  Receipt Date: 20131113
  Transmission Date: 20140711
  Serious: Yes (Other)
  Sender: FDA-Public Use
  Company Number: US-BAYER-2013-138208

PATIENT
  Age: 52 Year
  Sex: Female

DRUGS (3)
  1. GADAVIST [Suspect]
     Indication: NUCLEAR MAGNETIC RESONANCE IMAGING BRAIN
     Dosage: 6.2 ML FROM A 10 ML SINGLE USE VIAL IV VIA MANUAL INJECTION, ONCE
     Route: 042
     Dates: start: 20130912, end: 20130912
  2. GADAVIST [Suspect]
     Indication: HEADACHE
  3. GADAVIST [Suspect]
     Indication: DIPLOPIA

REACTIONS (3)
  - Urticaria [None]
  - Throat tightness [None]
  - Dyspnoea [None]
